FAERS Safety Report 24426138 (Version 3)
Quarter: 2025Q1

REPORT INFORMATION
  Report Type: Spontaneous
  Country: US (occurrence: US)
  Receive Date: 20241011
  Receipt Date: 20250228
  Transmission Date: 20250409
  Serious: Yes (Hospitalization)
  Sender: AUROBINDO
  Company Number: US-MLMSERVICE-20240924-PI199165-00327-1

PATIENT

DRUGS (6)
  1. OLANZAPINE [Suspect]
     Active Substance: OLANZAPINE
     Indication: Antipsychotic therapy
     Dosage: 5 MG IN THE MORNING AND 10 MG IN THE EVENING
     Route: 065
  2. OLANZAPINE [Suspect]
     Active Substance: OLANZAPINE
     Indication: Alcohol use disorder
     Dosage: 5 MG IN THE MORNING AND 10 MG IN THE EVENING
     Route: 065
  3. DIVALPROEX SODIUM [Suspect]
     Active Substance: DIVALPROEX SODIUM
     Indication: Antipsychotic therapy
     Dosage: 500 MG IN THE MORNING AND 700 MG IN THE EVENING
     Route: 065
  4. DIVALPROEX SODIUM [Suspect]
     Active Substance: DIVALPROEX SODIUM
     Indication: Alcohol use disorder
     Dosage: 700 MILLIGRAM, ONCE A DAY, 500 MG IN THE MORNING AND 700 MG IN THE EVENING
     Route: 065
  5. VALPROIC ACID [Concomitant]
     Active Substance: VALPROIC ACID
     Indication: Product used for unknown indication
     Dosage: 500 MILLIGRAM, ONCE A DAY (500 MG IN THE MORNING AND 700 MG IN THE EVENING)
     Route: 065
  6. VALPROIC ACID [Concomitant]
     Active Substance: VALPROIC ACID
     Dosage: 700 MILLIGRAM, ONCE A DAY (500 MG IN THE MORNING AND 700 MG IN THE EVENING)
     Route: 065

REACTIONS (2)
  - Periorbital oedema [Recovered/Resolved]
  - Face oedema [Unknown]
